FAERS Safety Report 9945171 (Version 1)
Quarter: 2014Q1

REPORT INFORMATION
  Report Type: Report from Study
  Country: US (occurrence: US)
  Receive Date: 20140303
  Receipt Date: 20140303
  Transmission Date: 20141002
  Serious: No
  Sender: FDA-Public Use
  Company Number: US-ABBVIE-13P-163-1049099-00

PATIENT
  Age: 71 Year
  Sex: Female

DRUGS (8)
  1. HUMIRA [Suspect]
     Indication: COLITIS ULCERATIVE
     Dosage: LOADING DOSE
     Dates: start: 20130129
  2. AMBIEN [Concomitant]
     Indication: INSOMNIA
     Dosage: AT BEDTIME
  3. ASACOL [Concomitant]
     Indication: COLITIS
  4. FLUTICASONE [Concomitant]
     Indication: NASAL SEPTUM DEVIATION
     Dosage: EACH NOSTRIL
  5. FOLIC ACID [Concomitant]
     Indication: VITAMIN SUPPLEMENTATION
  6. LIPITOR [Concomitant]
     Indication: BLOOD CHOLESTEROL
  7. PREVACID [Concomitant]
     Indication: GASTROOESOPHAGEAL REFLUX DISEASE
  8. TRIAM/HCTZ [Concomitant]
     Indication: BLOOD PRESSURE
     Dosage: 37.5/25MG DAILY

REACTIONS (3)
  - Cough [Recovering/Resolving]
  - Chills [Recovering/Resolving]
  - Pyrexia [Recovering/Resolving]
